FAERS Safety Report 20962505 (Version 3)
Quarter: 2022Q2

REPORT INFORMATION
  Report Type: Spontaneous
  Country: AU (occurrence: AU)
  Receive Date: 20220615
  Receipt Date: 20220624
  Transmission Date: 20220720
  Serious: Yes (Other)
  Sender: FDA-Public Use
  Company Number: AU-GSKCCFAPAC-Case-01509259_AE-58917

PATIENT

DRUGS (2)
  1. FLUTICASONE FUROATE [Suspect]
     Active Substance: FLUTICASONE FUROATE
     Indication: Upper-airway cough syndrome
     Dosage: 1 DF IN EACH NOSTRIL, 120 SPRAYS
  2. FLUTICASONE FUROATE [Suspect]
     Active Substance: FLUTICASONE FUROATE
     Dosage: 1 DF

REACTIONS (12)
  - Atrial fibrillation [Unknown]
  - Nasal congestion [Unknown]
  - Dyspnoea [Unknown]
  - Breathing-related sleep disorder [Unknown]
  - Positive airway pressure therapy [Unknown]
  - Cardiac disorder [Unknown]
  - Emotional distress [Unknown]
  - Condition aggravated [Unknown]
  - Inappropriate schedule of product administration [Unknown]
  - Incorrect dose administered [Unknown]
  - Product dose omission issue [Unknown]
  - Product complaint [Unknown]
